FAERS Safety Report 5733923-1 (Version None)
Quarter: 2008Q2

REPORT INFORMATION
  Report Type: 
  Country: None (occurrence: None)
  Receive Date: 20080509
  Receipt Date: 20080428
  Transmission Date: 20081010
  Serious: Yes (Hospitalization, Other)
  Sender: FDA-Public Use
  Company Number: US-PFIZER INC-2008037184

PATIENT
  Sex: Female
  Weight: 55 kg

DRUGS (12)
  1. LIPITOR [Suspect]
     Indication: BLOOD CHOLESTEROL
     Dates: start: 20070101, end: 20080401
  2. GABAPENTIN [Concomitant]
  3. OMEPRAZOLE [Concomitant]
  4. CELEBREX [Concomitant]
  5. TYLENOL (CAPLET) [Concomitant]
  6. ALL OTHER THERAPEUTIC PRODUCTS [Concomitant]
  7. VITAMIN CAP [Concomitant]
  8. ASCORBIC ACID [Concomitant]
  9. CALCIUM [Concomitant]
  10. GLUCOSAMINE W/CHONDROITIN SULFATES [Concomitant]
  11. OXYBUTYNIN CHLORIDE [Concomitant]
  12. MECLIZINE [Concomitant]

REACTIONS (7)
  - CHEST PAIN [None]
  - CHOLELITHIASIS [None]
  - ELECTROCARDIOGRAM PR SHORTENED [None]
  - GASTROENTERITIS [None]
  - LOSS OF CONSCIOUSNESS [None]
  - MYALGIA [None]
  - UNEVALUABLE EVENT [None]
